FAERS Safety Report 5052573-6 (Version None)
Quarter: 2006Q3

REPORT INFORMATION
  Report Type: 
  Country: None (occurrence: None)
  Receive Date: 20060717
  Receipt Date: 20060711
  Transmission Date: 20061208
  Serious: Yes (Hospitalization)
  Sender: FDA-Public Use
  Company Number: US-GLAXOSMITHKLINE-A0612342A

PATIENT
  Sex: Male

DRUGS (16)
  1. BUPROPION HYDROCHLORIDE [Suspect]
     Indication: MAJOR DEPRESSION
     Dosage: 600MG PER DAY
     Route: 048
     Dates: start: 20050909, end: 20051001
  2. VALTREX [Concomitant]
     Dosage: 500MG PER DAY
  3. ZELNORM [Concomitant]
     Dosage: 6MG PER DAY
  4. GLUCOPHAGE [Concomitant]
     Dosage: 500MG PER DAY
  5. ALBUTEROL SPIROS [Concomitant]
     Route: 055
  6. LITHIUM CARBONATE [Concomitant]
     Dosage: 900MG PER DAY
  7. TOPAMAX [Concomitant]
  8. TAZORAC [Concomitant]
  9. ADVAIR DISKUS 100/50 [Concomitant]
  10. PREVACID [Concomitant]
     Dosage: 30MG PER DAY
  11. SINGULAIR [Concomitant]
     Dosage: 10MG PER DAY
  12. FISH OIL [Concomitant]
  13. FLAXSEED [Concomitant]
  14. MAGNESIUM [Concomitant]
  15. MEGA B [Concomitant]
  16. CA++ [Concomitant]

REACTIONS (1)
  - PREMATURE LABOUR [None]
